FAERS Safety Report 14260882 (Version 6)
Quarter: 2018Q3

REPORT INFORMATION
  Report Type: Report from Study
  Country: JP (occurrence: JP)
  Receive Date: 20171207
  Receipt Date: 20180901
  Transmission Date: 20181010
  Serious: Yes (Hospitalization, Other)
  Sender: FDA-Public Use
  Company Number: JP-AMGEN-JPNCT2016186050

PATIENT
  Age: 65 Year
  Sex: Male
  Weight: 74.5 kg

DRUGS (24)
  1. CALCIUM LEVOFOLINATE [Suspect]
     Active Substance: LEVOLEUCOVORIN CALCIUM
     Dosage: 375 MG, Q2WEEKS
     Route: 041
     Dates: start: 20170322, end: 20170621
  2. ADENINE [Concomitant]
     Active Substance: ADENINE
     Indication: WHITE BLOOD CELL COUNT DECREASED
     Dosage: 2 DF, TID
     Route: 048
     Dates: start: 20170215
  3. INSULIN ASPART W/INSULIN DEGLUDEC [Concomitant]
     Indication: DIABETES MELLITUS
     Dosage: 5 IU, QD
     Route: 058
     Dates: start: 20170316
  4. FLUOROURACIL. [Suspect]
     Active Substance: FLUOROURACIL
     Dosage: 4500 MG, Q2WEEKS
     Route: 041
     Dates: start: 20161207, end: 20170222
  5. FLUOROURACIL. [Suspect]
     Active Substance: FLUOROURACIL
     Dosage: UNK
     Route: 042
     Dates: start: 20171108
  6. FLUOROURACIL. [Suspect]
     Active Substance: FLUOROURACIL
     Dosage: 4500 MG, Q2WEEKS
     Route: 041
     Dates: start: 20170322, end: 20170621
  7. FLUOROURACIL. [Suspect]
     Active Substance: FLUOROURACIL
     Dosage: 4500 MG, Q2WEEKS
     Route: 041
     Dates: start: 20170724, end: 20170911
  8. CALCIUM LEVOFOLINATE [Suspect]
     Active Substance: LEVOLEUCOVORIN CALCIUM
     Dosage: UNK
     Route: 041
     Dates: start: 20171108
  9. MUCOPOLYSACCHARIDE POLYSULFURIC ACID ESTER [Concomitant]
     Indication: PALMAR-PLANTAR ERYTHRODYSAESTHESIA SYNDROME
     Dosage: UNK UNK, BID
     Route: 062
     Dates: start: 20161207
  10. TRIAMCINOLONE ACETONIDE. [Concomitant]
     Active Substance: TRIAMCINOLONE ACETONIDE
     Indication: STOMATITIS
     Dosage: UNK UNK, QD
     Route: 050
     Dates: start: 20170703
  11. BETAMETHASONE VALERATE W/GENTAMICIN SULFATE [Concomitant]
     Indication: DERMATITIS
     Dosage: UNK
     Route: 062
     Dates: start: 20161221
  12. PANITUMUMAB [Suspect]
     Active Substance: PANITUMUMAB
     Dosage: 450 MG, Q2WK
     Route: 041
     Dates: start: 20170322, end: 20170621
  13. FLUOROURACIL. [Suspect]
     Active Substance: FLUOROURACIL
     Indication: RECTOSIGMOID CANCER
     Dosage: 750 MG, Q2WK
     Route: 040
     Dates: start: 20161207, end: 20170222
  14. CALCIUM LEVOFOLINATE [Suspect]
     Active Substance: LEVOLEUCOVORIN CALCIUM
     Indication: RECTOSIGMOID CANCER
     Dosage: 375 MG, Q2WEEKS
     Route: 041
     Dates: start: 20161207, end: 20170222
  15. OXALIPLATIN. [Suspect]
     Active Substance: OXALIPLATIN
     Dosage: 150 MG, Q2WEEKS
     Route: 041
     Dates: start: 20170724, end: 20170911
  16. FLUOROURACIL. [Suspect]
     Active Substance: FLUOROURACIL
     Dosage: 750 MG, Q2WK
     Route: 040
     Dates: start: 20170322, end: 20170621
  17. PANITUMUMAB [Suspect]
     Active Substance: PANITUMUMAB
     Indication: RECTOSIGMOID CANCER
     Dosage: 450 MG, Q2WK
     Route: 041
     Dates: start: 20161207, end: 20170222
  18. FLUOROURACIL. [Suspect]
     Active Substance: FLUOROURACIL
     Dosage: 750 MG, Q2WK
     Route: 040
     Dates: start: 20170724, end: 20170911
  19. PANITUMUMAB [Suspect]
     Active Substance: PANITUMUMAB
     Dosage: 450 MG, Q2WK
     Route: 041
     Dates: start: 20170724, end: 20170911
  20. GLIMEPIRIDE. [Concomitant]
     Active Substance: GLIMEPIRIDE
     Indication: DIABETES MELLITUS
     Dosage: 1 DF, QD
     Route: 048
     Dates: start: 20170316
  21. OXALIPLATIN. [Suspect]
     Active Substance: OXALIPLATIN
     Indication: RECTOSIGMOID CANCER
     Dosage: 150 MG, Q2WEEKS
     Route: 041
     Dates: start: 20161207, end: 20170222
  22. OXALIPLATIN. [Suspect]
     Active Substance: OXALIPLATIN
     Dosage: 150 MG, Q2WEEKS
     Route: 041
     Dates: start: 20170322, end: 20170621
  23. CALCIUM LEVOFOLINATE [Suspect]
     Active Substance: LEVOLEUCOVORIN CALCIUM
     Dosage: 375 MG, Q2WEEKS
     Route: 041
     Dates: start: 20170724, end: 20170911
  24. POLAPREZINC [Concomitant]
     Active Substance: POLAPREZINC
     Indication: DECREASED APPETITE
     Dosage: 75 MG, BID
     Route: 048
     Dates: start: 20161207

REACTIONS (16)
  - Neutrophil count decreased [Recovered/Resolved]
  - Interstitial lung disease [Recovering/Resolving]
  - Glucose tolerance impaired [Not Recovered/Not Resolved]
  - Platelet count decreased [Recovered/Resolved]
  - Dysgeusia [Not Recovered/Not Resolved]
  - Pneumomediastinum [Recovering/Resolving]
  - Dermatitis acneiform [Recovered/Resolved]
  - Dry skin [Recovered/Resolved]
  - Fatigue [Recovered/Resolved]
  - Aspartate aminotransferase increased [Recovered/Resolved]
  - Hypomagnesaemia [Not Recovered/Not Resolved]
  - Alanine aminotransferase increased [Recovered/Resolved]
  - Peripheral sensory neuropathy [Not Recovered/Not Resolved]
  - White blood cell count decreased [Recovered/Resolved]
  - Nausea [Recovered/Resolved]
  - Paronychia [Recovered/Resolved]

NARRATIVE: CASE EVENT DATE: 20170726
